FAERS Safety Report 9728386 (Version 2)
Quarter: 2013Q4

REPORT INFORMATION
  Report Type: Spontaneous
  Country: JP (occurrence: JP)
  Receive Date: 20131204
  Receipt Date: 20131204
  Transmission Date: 20140711
  Serious: Yes (Other)
  Sender: FDA-Public Use
  Company Number: JP-JNJFOC-20131108104

PATIENT
  Age: 48 Year
  Sex: Male

DRUGS (2)
  1. REMICADE [Suspect]
     Indication: PSORIATIC ARTHROPATHY
     Dosage: SECOND DOSE
     Route: 042
     Dates: start: 20131004, end: 20131108
  2. REMICADE [Suspect]
     Indication: PSORIATIC ARTHROPATHY
     Dosage: FIRST DOSE
     Route: 042
     Dates: start: 20130920

REACTIONS (2)
  - Liver disorder [Unknown]
  - Type IV hypersensitivity reaction [Unknown]
